FAERS Safety Report 21311602 (Version 1)
Quarter: 2022Q3

REPORT INFORMATION
  Report Type: Other
  Country: GB (occurrence: GB)
  Receive Date: 20220909
  Receipt Date: 20220909
  Transmission Date: 20221026
  Serious: Yes (Hospitalization)
  Sender: FDA-Public Use
  Company Number: GB-MACLEODS PHARMA UK LTD-2013-34771-014

PATIENT

DRUGS (6)
  1. LEVOFLOXACIN [Suspect]
     Active Substance: LEVOFLOXACIN
     Indication: Product used for unknown indication
     Dosage: 500 MG, BID
     Route: 048
     Dates: start: 20100223, end: 20100227
  2. CEPHALEXIN [Suspect]
     Active Substance: CEPHALEXIN
     Indication: Urinary tract infection
     Dosage: 250 MILLIGRAM, BID
     Route: 048
     Dates: start: 20110413, end: 20110417
  3. ERTAPENEM [Suspect]
     Active Substance: ERTAPENEM
     Indication: Cholecystitis
     Dosage: 1 GRAM, QD
     Route: 042
     Dates: start: 20110221, end: 20110223
  4. AMOXICILLIN [Suspect]
     Active Substance: AMOXICILLIN
     Indication: Product used for unknown indication
     Dosage: 500 MILLIGRAM, TID
     Route: 048
     Dates: start: 20110408, end: 20110409
  5. PIPERACILLIN SODIUM\TAZOBACTAM SODIUM [Suspect]
     Active Substance: PIPERACILLIN SODIUM\TAZOBACTAM SODIUM
     Indication: Cholecystitis
     Dosage: 4.5 GRAM, TID
     Route: 042
     Dates: start: 20110224, end: 20110302
  6. TRIMETHOPRIM [Suspect]
     Active Substance: TRIMETHOPRIM
     Indication: Product used for unknown indication
     Dosage: 200 MILLIGRAM, BID
     Route: 048
     Dates: start: 20100716, end: 20100818

REACTIONS (1)
  - Clostridium difficile infection [Recovered/Resolved]

NARRATIVE: CASE EVENT DATE: 20110417
